FAERS Safety Report 7738034-1 (Version None)
Quarter: 2011Q3

REPORT INFORMATION
  Report Type: 
  Country: None (occurrence: None)
  Receive Date: 20110908
  Receipt Date: 20110906
  Transmission Date: 20111222
  Serious: Yes (Hospitalization, Other)
  Sender: FDA-Public Use
  Company Number: US-TEVA-295397USA

PATIENT
  Sex: Female
  Weight: 54.48 kg

DRUGS (9)
  1. OBETROL [Concomitant]
  2. ISOTRETINOIN [Concomitant]
  3. VIIBRYD (VILAZODONE HCL) [Concomitant]
     Indication: ANXIETY
  4. LEXAPRO [Concomitant]
     Dosage: 5 MILLIGRAM;
  5. BUPROPION HCL [Concomitant]
     Dosage: 150 MILLIGRAM;
  6. VIIBRYD (VILAZODONE HCL) [Concomitant]
     Indication: STRESS
  7. YAZ [Concomitant]
     Indication: CONTRACEPTION
  8. ZOLPIDEM [Suspect]
     Indication: INSOMNIA
     Dosage: 10 MILLIGRAM; AT BEDTIME
     Dates: start: 20070101, end: 20110412
  9. SILENOR [Concomitant]
     Indication: INSOMNIA

REACTIONS (3)
  - WRIST FRACTURE [None]
  - ROAD TRAFFIC ACCIDENT [None]
  - SOMNAMBULISM [None]
